FAERS Safety Report 13128379 (Version 1)
Quarter: 2017Q1

REPORT INFORMATION
  Report Type: Report from Study
  Country: None (occurrence: CA)
  Receive Date: 20170118
  Receipt Date: 20170118
  Transmission Date: 20170428
  Serious: Yes (Hospitalization, Other)
  Sender: FDA-Public Use
  Company Number: CA-ABBVIE-17P-028-1839899-00

PATIENT
  Age: 75 Year
  Sex: Male
  Weight: 82 kg

DRUGS (18)
  1. HYOSCINE [Concomitant]
     Active Substance: SCOPOLAMINE
     Dosage: 0.5ML SUBCUTANEOUS 4 TIMES PER DAY, IF NOT RECEIVED ORALLY
     Route: 058
     Dates: start: 20161208
  2. SENOKOT [Concomitant]
     Active Substance: SENNOSIDES
     Indication: CONSTIPATION
     Dosage: 2 TABLETS AT BEDTIME
     Route: 048
     Dates: start: 20161225
  3. XATRAL [Concomitant]
     Active Substance: ALFUZOSIN
     Indication: PRODUCT USED FOR UNKNOWN INDICATION
     Route: 048
     Dates: start: 20161122
  4. ACETAMINOPHENE [Concomitant]
     Indication: PYREXIA
     Dosage: FOR PAIN OR FEVER AND NOT GIVEN ORALLY.
     Route: 054
     Dates: start: 20161127
  5. HALDOL [Concomitant]
     Active Substance: HALOPERIDOL
     Dosage: IF NOT RECEIVED ORALLY.
     Route: 058
     Dates: start: 20161208
  6. ATIVAN [Concomitant]
     Active Substance: LORAZEPAM
     Dosage: IF NOT RECEIVED ORALLY.
     Route: 058
     Dates: start: 20161209
  7. LUPRON DEPOT [Suspect]
     Active Substance: LEUPROLIDE ACETATE
     Indication: PROSTATE CANCER
     Route: 058
     Dates: start: 20150421
  8. NORVASC [Concomitant]
     Active Substance: AMLODIPINE BESYLATE
     Indication: PRODUCT USED FOR UNKNOWN INDICATION
     Route: 048
     Dates: start: 20161122
  9. DILAUDID [Concomitant]
     Active Substance: HYDROMORPHONE HYDROCHLORIDE
     Dosage: FOR PAIN AND WASN^T GIVEN ORALLY
     Route: 058
  10. ACETAMINOPHENE [Concomitant]
     Indication: PAIN
     Dosage: 2 TABLETS EVERY 4 HOURS
     Route: 048
     Dates: start: 20161127
  11. CASODEX [Concomitant]
     Active Substance: BICALUTAMIDE
     Indication: PRODUCT USED FOR UNKNOWN INDICATION
     Dosage: AT BEDTIME
     Dates: start: 20161122
  12. HALDOL [Concomitant]
     Active Substance: HALOPERIDOL
     Indication: NAUSEA
     Route: 048
     Dates: start: 20161126
  13. ATIVAN [Concomitant]
     Active Substance: LORAZEPAM
     Indication: PRODUCT USED FOR UNKNOWN INDICATION
     Dosage: AS NEEDED
     Route: 048
     Dates: start: 20161127
  14. HYOSCINE [Concomitant]
     Active Substance: SCOPOLAMINE
     Indication: PRODUCT USED FOR UNKNOWN INDICATION
     Route: 048
     Dates: start: 20161126
  15. DILAUDID [Concomitant]
     Active Substance: HYDROMORPHONE HYDROCHLORIDE
     Indication: PAIN
     Dosage: IF NEEDED FOR PAIN
     Route: 048
     Dates: start: 20161213
  16. GLYCERINE [Concomitant]
     Active Substance: GLYCERIN
     Indication: CONSTIPATION
     Dosage: IF CONSTIPATED
     Route: 054
     Dates: start: 20161208
  17. NITRO-DUR [Concomitant]
     Active Substance: NITROGLYCERIN
     Indication: PRODUCT USED FOR UNKNOWN INDICATION
     Dosage: 0.2MG/HOUR
     Route: 062
     Dates: start: 20161122
  18. PEGALAX [Concomitant]
     Indication: PRODUCT USED FOR UNKNOWN INDICATION
     Route: 048
     Dates: start: 20161128

REACTIONS (4)
  - Prostatic obstruction [Recovering/Resolving]
  - Prostate cancer metastatic [Unknown]
  - Ureteric obstruction [Unknown]
  - Renal failure [Recovering/Resolving]

NARRATIVE: CASE EVENT DATE: 20161122
